FAERS Safety Report 8366705-5 (Version None)
Quarter: 2012Q2

REPORT INFORMATION
  Report Type: 
  Country: None (occurrence: None)
  Receive Date: 20120516
  Receipt Date: 20120516
  Transmission Date: 20120825
  Serious: No
  Sender: FDA-Public Use
  Company Number: None

PATIENT
  Age: 65 Year
  Sex: Male

DRUGS (1)
  1. BUPIVACAINE HCL [Suspect]
     Indication: POSTOPERATIVE ANALGESIA
     Dosage: PER EPIDURAL DRIP
     Dates: start: 20120411, end: 20120413

REACTIONS (3)
  - WRONG DRUG ADMINISTERED [None]
  - PRODUCT LABEL ISSUE [None]
  - INCORRECT ROUTE OF DRUG ADMINISTRATION [None]
